FAERS Safety Report 5331702-0 (Version None)
Quarter: 2007Q2

REPORT INFORMATION
  Report Type: 
  Country: None (occurrence: None)
  Receive Date: 20070516
  Receipt Date: 20070507
  Transmission Date: 20071010
  Serious: Yes (Death, Hospitalization)
  Sender: FDA-Public Use
  Company Number: CLOF-10524

PATIENT
  Sex: Male

DRUGS (4)
  1. CLOFARABINE MFR:  GENZYME [Suspect]
     Indication: ACUTE LEUKAEMIA
  2. ACETAMINOPHEN [Concomitant]
  3. ALLOPURINOL [Concomitant]
  4. HYDROCORTISONE [Concomitant]

REACTIONS (6)
  - GASTRIC VOLVULUS [None]
  - HYPOTENSION [None]
  - NEUTROPENIA [None]
  - RENAL FAILURE [None]
  - RESPIRATORY FAILURE [None]
  - SEPSIS [None]
